FAERS Safety Report 14396783 (Version 17)
Quarter: 2025Q1

REPORT INFORMATION
  Report Type: Report from Study
  Country: CA (occurrence: CA)
  Receive Date: 20180116
  Receipt Date: 20250128
  Transmission Date: 20250409
  Serious: Yes (Other)
  Sender: TAKEDA
  Company Number: CA-TAKEDA-2017TUS013235

PATIENT
  Sex: Male

DRUGS (42)
  1. VEDOLIZUMAB [Suspect]
     Active Substance: VEDOLIZUMAB
     Indication: Crohn^s disease
  2. VEDOLIZUMAB [Suspect]
     Active Substance: VEDOLIZUMAB
  3. VEDOLIZUMAB [Suspect]
     Active Substance: VEDOLIZUMAB
  4. VEDOLIZUMAB [Suspect]
     Active Substance: VEDOLIZUMAB
  5. VEDOLIZUMAB [Suspect]
     Active Substance: VEDOLIZUMAB
  6. VEDOLIZUMAB [Suspect]
     Active Substance: VEDOLIZUMAB
     Dosage: 300 MILLIGRAM, Q4WEEKS
     Dates: start: 20190327
  7. VEDOLIZUMAB [Suspect]
     Active Substance: VEDOLIZUMAB
     Dosage: 300 MILLIGRAM, Q4WEEKS
  8. VEDOLIZUMAB [Suspect]
     Active Substance: VEDOLIZUMAB
  9. VEDOLIZUMAB [Suspect]
     Active Substance: VEDOLIZUMAB
  10. VEDOLIZUMAB [Suspect]
     Active Substance: VEDOLIZUMAB
  11. VEDOLIZUMAB [Suspect]
     Active Substance: VEDOLIZUMAB
  12. VEDOLIZUMAB [Suspect]
     Active Substance: VEDOLIZUMAB
  13. IRON [Suspect]
     Active Substance: IRON
     Indication: Product used for unknown indication
  14. ADVAIR HFA [Concomitant]
     Active Substance: FLUTICASONE PROPIONATE\SALMETEROL XINAFOATE
  15. ALENDRONATE [Concomitant]
     Active Substance: ALENDRONATE SODIUM
  16. ATORVASTATIN [Concomitant]
     Active Substance: ATORVASTATIN
  17. CALCIUM [Concomitant]
     Active Substance: CALCIUM
     Dosage: 500 MILLIGRAM, QD
  18. FUROSEMIDE [Concomitant]
     Active Substance: FUROSEMIDE
     Dosage: 20 MILLIGRAM, QD
  19. FUROSEMIDE [Concomitant]
     Active Substance: FUROSEMIDE
     Dosage: 80 MILLIGRAM, BID
  20. PREDNISONE [Concomitant]
     Active Substance: PREDNISONE
  21. PREGABALIN [Concomitant]
     Active Substance: PREGABALIN
  22. ASPIRIN [Concomitant]
     Active Substance: ASPIRIN
  23. PRO-BISOPROLOL [Concomitant]
  24. PRO RAMIPRIL [Concomitant]
  25. PANTOPRAZOLE SODIUM [Concomitant]
     Active Substance: PANTOPRAZOLE SODIUM
  26. SPIRIVA [Concomitant]
     Active Substance: TIOTROPIUM BROMIDE MONOHYDRATE
  27. SPIRONOLACTONE [Concomitant]
     Active Substance: SPIRONOLACTONE
  28. ACETAMINOPHEN\TRAMADOL [Concomitant]
     Active Substance: ACETAMINOPHEN\TRAMADOL
  29. HYDROMORPHONE [Concomitant]
     Active Substance: HYDROMORPHONE
  30. OXAZEPAM [Concomitant]
     Active Substance: OXAZEPAM
  31. MESALAMINE [Concomitant]
     Active Substance: MESALAMINE
  32. ACETAMINOPHEN [Concomitant]
     Active Substance: ACETAMINOPHEN
     Indication: Premedication
  33. ENTRESTO [Concomitant]
     Active Substance: SACUBITRIL\VALSARTAN
  34. FERROUS SULFATE [Concomitant]
     Active Substance: FERROUS SULFATE
  35. ASPIRIN [Concomitant]
     Active Substance: ASPIRIN
  36. TRAMADOL HYDROCHLORIDE [Concomitant]
     Active Substance: TRAMADOL HYDROCHLORIDE
  37. METOPROLOL [Concomitant]
     Active Substance: METOPROLOL
  38. VITAMIN B12 [Concomitant]
     Active Substance: CYANOCOBALAMIN
  39. NITROGLYCERIN [Concomitant]
     Active Substance: NITROGLYCERIN
  40. VITAMIN D NOS [Concomitant]
     Active Substance: CHOLECALCIFEROL\ERGOCALCIFEROL
  41. POTASSIUM [Concomitant]
     Active Substance: POTASSIUM
  42. BISOPROLOL [Concomitant]
     Active Substance: BISOPROLOL

REACTIONS (19)
  - Haematochezia [Unknown]
  - Cataract [Recovered/Resolved]
  - Anorectal discomfort [Not Recovered/Not Resolved]
  - Poor quality sleep [Unknown]
  - Faeces soft [Unknown]
  - Eye infection [Recovered/Resolved]
  - Oropharyngeal discomfort [Unknown]
  - Productive cough [Unknown]
  - Sleep apnoea syndrome [Unknown]
  - Haemoglobin decreased [Unknown]
  - Off label use [Unknown]
  - Abdominal pain [Unknown]
  - Nasopharyngitis [Recovered/Resolved]
  - Fatigue [Unknown]
  - Drug intolerance [Unknown]
  - Blood pressure decreased [Recovered/Resolved]
  - Hypoaesthesia oral [Recovered/Resolved]
  - Metamorphopsia [Recovered/Resolved]
  - Blood pressure increased [Recovered/Resolved]

NARRATIVE: CASE EVENT DATE: 20180101
